FAERS Safety Report 8489723-5 (Version None)
Quarter: 2012Q3

REPORT INFORMATION
  Report Type: 
  Country: None (occurrence: None)
  Receive Date: 20120705
  Receipt Date: 20120625
  Transmission Date: 20120928
  Serious: Yes (Death, Hospitalization)
  Sender: FDA-Public Use
  Company Number: GB-GLAXOSMITHKLINE-B0810156A

PATIENT
  Age: 66 Year
  Sex: Female

DRUGS (18)
  1. LEVOTHYROXINE SODIUM [Concomitant]
     Indication: HYPOTHYROIDISM
  2. SALMETEROL [Concomitant]
     Indication: ASTHMA
     Route: 055
  3. GLICLAZIDE [Concomitant]
  4. RAMIPRIL [Concomitant]
     Indication: ESSENTIAL HYPERTENSION
     Dates: end: 20120313
  5. AMITRIPTYLINE HCL [Concomitant]
  6. FLUOXETINE [Concomitant]
     Indication: FIBROMYALGIA
     Dosage: 40MG PER DAY
     Dates: end: 20120313
  7. NEBIVOLOL [Concomitant]
     Indication: MYOCARDIAL ISCHAEMIA
  8. CLOBETASOL PROPIONATE [Suspect]
     Indication: ATROPHIC VULVOVAGINITIS
     Route: 061
     Dates: start: 20120217
  9. TRIMETHOPRIM [Suspect]
     Indication: ATROPHIC VULVOVAGINITIS
     Dosage: 400MG PER DAY
     Dates: start: 20120217
  10. METFORMIN HCL [Concomitant]
     Indication: TYPE 2 DIABETES MELLITUS
     Dosage: 2550MG PER DAY
     Dates: end: 20120313
  11. ALBUTEROL SULATE [Concomitant]
     Dates: end: 20120313
  12. MEBEVERINE [Concomitant]
     Indication: TYPE 2 DIABETES MELLITUS
     Dosage: 405MG PER DAY
     Dates: end: 20120313
  13. SIMVASTATIN [Concomitant]
     Indication: TYPE 2 DIABETES MELLITUS
     Dosage: 40MG PER DAY
  14. NITROGLYCERIN [Concomitant]
     Indication: MYOCARDIAL ISCHAEMIA
     Dates: end: 20120313
  15. GLICLAZIDE [Concomitant]
     Indication: TYPE 2 DIABETES MELLITUS
     Dates: end: 20120313
  16. ASPIRIN [Concomitant]
     Indication: ARTERIOGRAM CORONARY
     Dosage: 75MG PER DAY
  17. VAGIFEM [Suspect]
     Indication: ATROPHIC VULVOVAGINITIS
     Route: 067
     Dates: start: 20120217
  18. NEBIVOLOL [Concomitant]

REACTIONS (25)
  - VIITH NERVE PARALYSIS [None]
  - MICTURITION URGENCY [None]
  - DYSARTHRIA [None]
  - SPEECH DISORDER [None]
  - FACIAL PARESIS [None]
  - HEADACHE [None]
  - HEMIPARESIS [None]
  - VISUAL FIELD DEFECT [None]
  - NECK PAIN [None]
  - HYPERTONIA [None]
  - CEREBROVASCULAR ACCIDENT [None]
  - MUSCLE RIGIDITY [None]
  - FACIAL ASYMMETRY [None]
  - HYPERTENSIVE CRISIS [None]
  - PUPILLARY REFLEX IMPAIRED [None]
  - ESSENTIAL HYPERTENSION [None]
  - DEFAECATION URGENCY [None]
  - VOMITING [None]
  - MUSCLE TWITCHING [None]
  - CEREBRAL HAEMORRHAGE [None]
  - FALL [None]
  - BABINSKI REFLEX TEST [None]
  - LIMB ASYMMETRY [None]
  - CONVULSION [None]
  - SNORING [None]
